FAERS Safety Report 9613387 (Version 1)
Quarter: 2013Q4

REPORT INFORMATION
  Report Type: Spontaneous
  Country: US (occurrence: US)
  Receive Date: 20131010
  Receipt Date: 20131010
  Transmission Date: 20140711
  Serious: Yes (Other)
  Sender: FDA-Public Use
  Company Number: US-PFIZER INC-2013286631

PATIENT
  Age: 17 Year
  Sex: Male

DRUGS (1)
  1. BENEFIX [Suspect]
     Dosage: UNK
     Dates: start: 199701

REACTIONS (1)
  - Contusion [Unknown]
